FAERS Safety Report 4319267-3 (Version None)
Quarter: 2004Q1

REPORT INFORMATION
  Report Type: 
  Country: None (occurrence: None)
  Receive Date: 20040316
  Receipt Date: 20040305
  Transmission Date: 20041129
  Serious: Yes (Death, Life-Threatening)
  Sender: FDA-Public Use
  Company Number: DE-SHR-03-015869

PATIENT
  Age: 68 Year
  Sex: Female

DRUGS (2)
  1. ULTRAVIST 300 [Suspect]
     Indication: COMPUTERISED TOMOGRAM
     Dosage: 100 ML, 1 DOSE, INTRAVENOUS
     Route: 042
     Dates: start: 20031011, end: 20031011
  2. CHEMOTHERAPEUTICS [Concomitant]

REACTIONS (8)
  - ARRHYTHMIA [None]
  - CARDIO-RESPIRATORY ARREST [None]
  - CARDIOPULMONARY FAILURE [None]
  - CONTRAST MEDIA REACTION [None]
  - DIZZINESS [None]
  - DYSPNOEA [None]
  - MALAISE [None]
  - MYOCARDIAL INFARCTION [None]
